FAERS Safety Report 5316613-9 (Version None)
Quarter: 2007Q2

REPORT INFORMATION
  Report Type: 
  Country: None (occurrence: None)
  Receive Date: 20070504
  Receipt Date: 20070424
  Transmission Date: 20071010
  Serious: Yes (Hospitalization)
  Sender: FDA-Public Use
  Company Number: AU-AMGEN-US191401

PATIENT
  Sex: Male

DRUGS (72)
  1. PANITUMUMAB [Suspect]
     Route: 042
     Dates: start: 20060704, end: 20060704
  2. PANITUMUMAB [Suspect]
     Route: 042
     Dates: start: 20060711, end: 20060711
  3. PANITUMUMAB [Suspect]
     Route: 042
     Dates: start: 20060802, end: 20060802
  4. PANITUMUMAB [Suspect]
     Route: 042
     Dates: start: 20060816, end: 20060816
  5. PANITUMUMAB [Suspect]
     Dates: start: 20060830, end: 20060830
  6. PANITUMUMAB [Suspect]
     Route: 042
     Dates: start: 20060913, end: 20060913
  7. PANITUMUMAB [Suspect]
     Dates: start: 20060927, end: 20060927
  8. PANITUMUMAB [Suspect]
     Route: 042
     Dates: start: 20061011, end: 20061011
  9. PANITUMUMAB [Suspect]
     Route: 042
     Dates: start: 20061025, end: 20061025
  10. PANITUMUMAB [Suspect]
     Route: 042
     Dates: start: 20061108, end: 20061108
  11. PANITUMUMAB [Suspect]
     Route: 042
     Dates: start: 20061122, end: 20061122
  12. PANITUMUMAB [Suspect]
     Route: 042
     Dates: start: 20061206, end: 20061206
  13. IRINOTECAN HCL [Concomitant]
     Route: 042
     Dates: start: 20060704, end: 20060704
  14. IRINOTECAN HCL [Concomitant]
     Route: 042
     Dates: start: 20060711, end: 20060711
  15. IRINOTECAN HCL [Concomitant]
     Route: 042
     Dates: start: 20060802, end: 20060802
  16. IRINOTECAN HCL [Concomitant]
     Route: 042
     Dates: start: 20060816, end: 20060816
  17. IRINOTECAN HCL [Concomitant]
     Route: 042
     Dates: start: 20060830, end: 20060830
  18. IRINOTECAN HCL [Concomitant]
     Route: 042
     Dates: start: 20060913, end: 20060913
  19. IRINOTECAN HCL [Concomitant]
     Route: 042
     Dates: start: 20060913, end: 20060913
  20. IRINOTECAN HCL [Concomitant]
     Route: 042
     Dates: start: 20060927, end: 20060927
  21. IRINOTECAN HCL [Concomitant]
     Route: 042
     Dates: start: 20061011, end: 20061011
  22. IRINOTECAN HCL [Concomitant]
     Route: 042
     Dates: start: 20061025, end: 20061025
  23. IRINOTECAN HCL [Concomitant]
     Route: 042
     Dates: start: 20061108, end: 20061108
  24. IRINOTECAN HCL [Concomitant]
     Route: 042
     Dates: start: 20061122, end: 20061122
  25. IRINOTECAN HCL [Concomitant]
     Route: 042
     Dates: start: 20061206
  26. LEUCOVORIN CALCIUM [Concomitant]
     Route: 042
     Dates: start: 20060704, end: 20060704
  27. LEUCOVORIN CALCIUM [Concomitant]
     Route: 042
     Dates: start: 20060711, end: 20060711
  28. LEUCOVORIN CALCIUM [Concomitant]
     Route: 042
     Dates: start: 20060802, end: 20060802
  29. LEUCOVORIN CALCIUM [Concomitant]
     Route: 042
     Dates: start: 20060816, end: 20060816
  30. LEUCOVORIN CALCIUM [Concomitant]
     Route: 042
     Dates: start: 20060830, end: 20060830
  31. LEUCOVORIN CALCIUM [Concomitant]
     Route: 042
     Dates: start: 20060913, end: 20060913
  32. LEUCOVORIN CALCIUM [Concomitant]
     Route: 042
     Dates: start: 20060927, end: 20060927
  33. LEUCOVORIN CALCIUM [Concomitant]
     Route: 042
     Dates: start: 20061011, end: 20061011
  34. LEUCOVORIN CALCIUM [Concomitant]
     Route: 042
     Dates: start: 20061025, end: 20061025
  35. LEUCOVORIN CALCIUM [Concomitant]
     Route: 042
     Dates: start: 20061108, end: 20061108
  36. LEUCOVORIN CALCIUM [Concomitant]
     Route: 042
     Dates: start: 20061122, end: 20061122
  37. LEUCOVORIN CALCIUM [Concomitant]
     Route: 042
     Dates: start: 20061206, end: 20061206
  38. FLUOROURACIL [Concomitant]
     Route: 040
     Dates: start: 20060704, end: 20060704
  39. FLUOROURACIL [Concomitant]
     Route: 040
     Dates: start: 20060711, end: 20060711
  40. FLUOROURACIL [Concomitant]
     Route: 040
     Dates: start: 20060802, end: 20060802
  41. FLUOROURACIL [Concomitant]
     Route: 040
     Dates: start: 20060816, end: 20060816
  42. FLUOROURACIL [Concomitant]
     Route: 040
     Dates: start: 20060830, end: 20060830
  43. FLUOROURACIL [Concomitant]
     Route: 040
     Dates: start: 20060913, end: 20060913
  44. FLUOROURACIL [Concomitant]
     Route: 040
     Dates: start: 20060927, end: 20060927
  45. FLUOROURACIL [Concomitant]
     Route: 040
     Dates: start: 20061011, end: 20061011
  46. FLUOROURACIL [Concomitant]
     Route: 042
     Dates: start: 20061025, end: 20061025
  47. FLUOROURACIL [Concomitant]
     Route: 040
     Dates: start: 20061108, end: 20061108
  48. FLUOROURACIL [Concomitant]
     Route: 040
     Dates: start: 20061122, end: 20061122
  49. FLUOROURACIL [Concomitant]
     Route: 040
     Dates: start: 20061206, end: 20061206
  50. RAMIPRIL [Concomitant]
     Route: 065
     Dates: start: 20060301
  51. MAGNESIUM ASPARTATE [Concomitant]
     Route: 065
  52. CLOPIDOGREL [Concomitant]
     Route: 065
  53. FERRO-GRADUMET [Concomitant]
     Route: 065
     Dates: start: 20060301
  54. SIMVASTATIN [Concomitant]
     Route: 065
  55. ACETAMINOPHEN W/ CODEINE [Concomitant]
     Route: 065
  56. PLAVIX [Concomitant]
     Route: 048
     Dates: end: 20061214
  57. ZOCOR [Concomitant]
     Route: 048
     Dates: start: 20010101
  58. CLEXANE [Concomitant]
     Route: 058
     Dates: start: 20061212
  59. VIRASOLVE [Concomitant]
     Dates: start: 20060915, end: 20060925
  60. MAGNESIUM ASPARTATE [Concomitant]
  61. FLUOROURACIL [Concomitant]
     Route: 042
     Dates: start: 20060704, end: 20060704
  62. FLUOROURACIL [Concomitant]
     Route: 042
     Dates: start: 20060711, end: 20060711
  63. FLUOROURACIL [Concomitant]
     Route: 042
     Dates: start: 20060802, end: 20060802
  64. FLUOROURACIL [Concomitant]
     Route: 042
     Dates: start: 20060816, end: 20060816
  65. FLUOROURACIL [Concomitant]
     Route: 042
     Dates: start: 20060830, end: 20060830
  66. FLUOROURACIL [Concomitant]
     Route: 042
     Dates: start: 20060913, end: 20060913
  67. FLUOROURACIL [Concomitant]
     Route: 042
     Dates: start: 20060927, end: 20060927
  68. FLUOROURACIL [Concomitant]
     Route: 042
     Dates: start: 20061011, end: 20061011
  69. FLUOROURACIL [Concomitant]
     Route: 042
     Dates: start: 20061025, end: 20061025
  70. FLUOROURACIL [Concomitant]
     Route: 042
     Dates: start: 20061108, end: 20061108
  71. FLUOROURACIL [Concomitant]
     Route: 042
     Dates: start: 20061122, end: 20061122
  72. FLUOROURACIL [Concomitant]
     Route: 042
     Dates: start: 20061206, end: 20061206

REACTIONS (1)
  - DERMATITIS INFECTED [None]
